FAERS Safety Report 19804242 (Version 2)
Quarter: 2024Q3

REPORT INFORMATION
  Report Type: Spontaneous
  Country: US (occurrence: None)
  Receive Date: 20210908
  Receipt Date: 20240906
  Transmission Date: 20241017
  Serious: No
  Sender: DOMPE FARMACEUTICI
  Company Number: US-FARMAPROD-202104-0560

PATIENT
  Age: 58 Year
  Sex: Female

DRUGS (27)
  1. OXERVATE [Suspect]
     Active Substance: CENEGERMIN-BKBJ
     Indication: Neurotrophic keratopathy
     Route: 047
     Dates: start: 202103, end: 20210527
  2. OXERVATE [Suspect]
     Active Substance: CENEGERMIN-BKBJ
     Route: 047
     Dates: start: 20230711, end: 202308
  3. OXERVATE [Suspect]
     Active Substance: CENEGERMIN-BKBJ
  4. OXERVATE [Suspect]
     Active Substance: CENEGERMIN-BKBJ
  5. REFRESH CELLUVISC [Concomitant]
     Active Substance: CARBOXYMETHYLCELLULOSE SODIUM
     Dosage: DROPPER GEL
  6. DORZOLAMIDE\TIMOLOL [Concomitant]
     Active Substance: DORZOLAMIDE\TIMOLOL
  7. CALCITONIN SALMON [Concomitant]
     Active Substance: CALCITONIN SALMON
  8. OZEMPIC [Concomitant]
     Active Substance: SEMAGLUTIDE
     Dosage: 2 MG / 0.75 ML PEN INJECTOR
  9. BIOTIN [Concomitant]
     Active Substance: BIOTIN
  10. VITAMINS [Concomitant]
     Active Substance: VITAMINS
  11. VITAMINS [Concomitant]
     Active Substance: VITAMINS
     Dosage: 19 29-1-25
  12. VITAMIN D3 [Concomitant]
     Active Substance: CHOLECALCIFEROL
  13. ASPIRIN [Concomitant]
     Active Substance: ASPIRIN
  14. VRAYLAR [Concomitant]
     Active Substance: CARIPRAZINE
  15. KLONOPIN [Concomitant]
     Active Substance: CLONAZEPAM
  16. PRIMIDONE [Concomitant]
     Active Substance: PRIMIDONE
  17. FINASTERIDE [Concomitant]
     Active Substance: FINASTERIDE
  18. PREGABALIN [Concomitant]
     Active Substance: PREGABALIN
  19. ATORVASTATIN CALCIUM [Concomitant]
     Active Substance: ATORVASTATIN CALCIUM
  20. VENLAFAXINE HCL [Concomitant]
     Active Substance: VENLAFAXINE HYDROCHLORIDE
  21. VIIBRYD [Concomitant]
     Active Substance: VILAZODONE HYDROCHLORIDE
  22. RESTASIS [Concomitant]
     Active Substance: CYCLOSPORINE
     Indication: Dry eye
     Dosage: BOTH EYES
  23. XIIDRA [Concomitant]
     Active Substance: LIFITEGRAST
     Indication: Dry eye
     Dosage: OCULUS DEXTER
  24. SERUM TEAR [Concomitant]
     Indication: Dry eye
     Dosage: OPTHALMIC SOLUTION
     Dates: start: 201907
  25. ARTIFICIAL TEARS [Concomitant]
     Indication: Dry eye
     Dosage: AS NEEDED
     Dates: start: 201603
  26. TYRVAYA [Concomitant]
     Active Substance: VARENICLINE TARTRATE
     Indication: Dry eye
  27. REGENER EYES [Concomitant]
     Indication: Dry eye
     Dates: start: 202202, end: 202203

REACTIONS (4)
  - Vision blurred [Unknown]
  - Drug ineffective [Not Recovered/Not Resolved]
  - Product dose omission issue [Unknown]
  - Wrong technique in product usage process [Unknown]

NARRATIVE: CASE EVENT DATE: 20230801
